FAERS Safety Report 19203635 (Version 1)
Quarter: 2021Q2

REPORT INFORMATION
  Report Type: Report from Study
  Country: GB (occurrence: GB)
  Receive Date: 20210503
  Receipt Date: 20210503
  Transmission Date: 20210717
  Serious: Yes (Other)
  Sender: FDA-Public Use
  Company Number: GB-TAKEDA-2021TUS027200

PATIENT
  Age: 75 Year
  Sex: Female

DRUGS (1)
  1. VEDOLIZUMAB [Suspect]
     Active Substance: VEDOLIZUMAB
     Indication: COLITIS
     Dosage: 108 MILLIGRAM, Q2WEEKS
     Route: 058

REACTIONS (1)
  - Lower respiratory tract infection [Not Recovered/Not Resolved]
